FAERS Safety Report 24001191 (Version 1)
Quarter: 2024Q2

REPORT INFORMATION
  Report Type: Other
  Country: IN (occurrence: None)
  Receive Date: 20240621
  Receipt Date: 20240621
  Transmission Date: 20240716
  Serious: Yes (Life-Threatening, Hospitalization, Other)
  Sender: FDA-Public Use
  Company Number: IN-Invatech-000339

PATIENT
  Age: 46 Year
  Sex: Male

DRUGS (9)
  1. CYPROHEPTADINE [Suspect]
     Active Substance: CYPROHEPTADINE
     Indication: Serotonin syndrome
     Dosage: 8 MG QID (FOUR TIMES A DAY)
  2. PREGABALIN [Concomitant]
     Active Substance: PREGABALIN
     Indication: Spinal osteoarthritis
  3. TRAMADOL [Concomitant]
     Active Substance: TRAMADOL\TRAMADOL HYDROCHLORIDE
     Indication: Spinal osteoarthritis
  4. NORTRIPTYLINE [Concomitant]
     Active Substance: NORTRIPTYLINE
     Indication: Spinal osteoarthritis
  5. ONDANSETRON [Concomitant]
     Active Substance: ONDANSETRON
     Indication: Product used for unknown indication
  6. CYPROHEPTADINE [Suspect]
     Active Substance: CYPROHEPTADINE
     Indication: Serotonin syndrome
     Dosage: 4 MG QID (FOUR TIMES A DAY)
  7. CYPROHEPTADINE [Suspect]
     Active Substance: CYPROHEPTADINE
     Indication: Serotonin syndrome
     Dosage: 8 MG QID (FOUR TIMES A DAY)
  8. CYPROHEPTADINE [Suspect]
     Active Substance: CYPROHEPTADINE
     Indication: Serotonin syndrome
     Dosage: 2 MG EVERY 2 HRS
  9. CYPROHEPTADINE [Suspect]
     Active Substance: CYPROHEPTADINE
     Indication: Serotonin syndrome
     Dosage: 12 MG A LOADING DOSE

REACTIONS (2)
  - Serotonin syndrome [Recovered/Resolved]
  - Condition aggravated [Recovered/Resolved]
